FAERS Safety Report 4345277-6 (Version None)
Quarter: 2004Q2

REPORT INFORMATION
  Report Type: 
  Country: None (occurrence: None)
  Receive Date: 20040420
  Receipt Date: 20040407
  Transmission Date: 20050107
  Serious: Yes (Other)
  Sender: FDA-Public Use
  Company Number: A105768

PATIENT
  Age: 49 Year
  Sex: Male

DRUGS (3)
  1. VIAGRA [Suspect]
     Indication: ERECTILE DYSFUNCTION
     Dosage: 100 MG (PRN), ORAL
     Route: 048
  2. DIHYDROCODEINE (DIHYDROCODEINE) [Suspect]
     Indication: PAIN
     Dosage: 120 MG (QID), ORAL
     Route: 048
  3. NSAID'S (NSAID'S) [Concomitant]

REACTIONS (5)
  - DRUG INTERACTION [None]
  - LIMB INJURY [None]
  - PAIN [None]
  - PRIAPISM [None]
  - SOFT TISSUE INJURY [None]
